FAERS Safety Report 12190038 (Version 1)
Quarter: 2016Q1

REPORT INFORMATION
  Report Type: Spontaneous
  Country: None (occurrence: None)
  Receive Date: 20160317
  Receipt Date: 20160317
  Transmission Date: 20160526
  Serious: No
  Sender: FDA-Public Use
  Company Number: None

PATIENT
  Age: 1 Month
  Sex: Male
  Weight: 100 kg

DRUGS (8)
  1. PERINDOPRIL [Concomitant]
     Active Substance: PERINDOPRIL
  2. AMLODIPINE [Concomitant]
     Active Substance: AMLODIPINE BESYLATE
  3. GLICLAZIDE [Concomitant]
     Active Substance: GLICLAZIDE
  4. DULOXETINE. [Concomitant]
     Active Substance: DULOXETINE
  5. LIPITOR [Concomitant]
     Active Substance: ATORVASTATIN CALCIUM
  6. ALOGLIPTIN [Concomitant]
     Active Substance: ALOGLIPTIN
  7. LIPITOR [Suspect]
     Active Substance: ATORVASTATIN CALCIUM
     Indication: TYPE 2 DIABETES MELLITUS
     Dosage: ONE PER DAY, AT BEDTIME, TAKEN BY MOUTH
  8. METFORMIN [Concomitant]
     Active Substance: METFORMIN HYDROCHLORIDE

REACTIONS (2)
  - Dizziness postural [None]
  - Balance disorder [None]

NARRATIVE: CASE EVENT DATE: 20160315
